FAERS Safety Report 10182901 (Version 1)
Quarter: 2014Q2

REPORT INFORMATION
  Report Type: Report from Study
  Country: CA (occurrence: CA)
  Receive Date: 20140520
  Receipt Date: 20140520
  Transmission Date: 20141212
  Serious: Yes (Other)
  Sender: FDA-Public Use
  Company Number: CA-JNJFOC-20140508418

PATIENT
  Age: 40 Year
  Sex: Female
  Weight: 66.68 kg

DRUGS (2)
  1. SIMPONI [Suspect]
     Indication: RHEUMATOID ARTHRITIS
     Route: 058
  2. SIMPONI [Suspect]
     Indication: RHEUMATOID ARTHRITIS
     Dosage: 3-4 WEEKS
     Route: 058

REACTIONS (3)
  - Localised infection [Recovered/Resolved]
  - Blister [Recovered/Resolved]
  - Impaired healing [Not Recovered/Not Resolved]
